FAERS Safety Report 20309219 (Version 1)
Quarter: 2022Q1

REPORT INFORMATION
  Report Type: Spontaneous
  Country: CA (occurrence: CA)
  Receive Date: 20220107
  Receipt Date: 20220107
  Transmission Date: 20220423
  Serious: Yes (Other)
  Sender: FDA-Public Use
  Company Number: CA-Concordia Pharmaceuticals Inc.-GSH201610-005370

PATIENT

DRUGS (7)
  1. HYDROXYCHLOROQUINE [Suspect]
     Active Substance: HYDROXYCHLOROQUINE
     Indication: Rheumatoid arthritis
     Dosage: 200 MG, BID
     Route: 065
     Dates: end: 2007
  2. ARAVA [Suspect]
     Active Substance: LEFLUNOMIDE
     Indication: Rheumatoid arthritis
     Dosage: 20 MG, QD
     Route: 065
     Dates: start: 2007, end: 2012
  3. SULFASALAZINE [Suspect]
     Active Substance: SULFASALAZINE
     Indication: Rheumatoid arthritis
     Dosage: UNK
     Route: 065
  4. METHOTREXATE [Suspect]
     Active Substance: METHOTREXATE
     Indication: Rheumatoid arthritis
     Dosage: 25 MG, WEEKLY
     Route: 058
     Dates: start: 2007, end: 2012
  5. METHOTREXATE [Suspect]
     Active Substance: METHOTREXATE
     Dosage: 25 MG, WEEKLY
     Route: 048
     Dates: start: 2007, end: 2012
  6. NAPROXEN [Suspect]
     Active Substance: NAPROXEN
     Indication: Rheumatoid arthritis
     Dosage: UNK, PRN
     Route: 065
  7. XELJANZ [Concomitant]
     Active Substance: TOFACITINIB CITRATE
     Indication: Rheumatoid arthritis
     Dosage: FOR OVER 3 MONTHS
     Dates: start: 20151209

REACTIONS (7)
  - Hepatotoxicity [Unknown]
  - Renal impairment [Recovered/Resolved]
  - Tooth disorder [Not Recovered/Not Resolved]
  - Abdominal distension [Unknown]
  - Hepatic function abnormal [Unknown]
  - Diarrhoea [Unknown]
  - Therapeutic product effect delayed [Unknown]
